FAERS Safety Report 14567694 (Version 1)
Quarter: 2018Q1

REPORT INFORMATION
  Report Type: Spontaneous
  Country: US (occurrence: US)
  Receive Date: 20180223
  Receipt Date: 20180223
  Transmission Date: 20180509
  Serious: Yes (Other)
  Sender: FDA-Public Use
  Company Number: US-GLAXOSMITHKLINE-US2018GSK028671

PATIENT
  Sex: Female

DRUGS (2)
  1. LAMICTAL [Suspect]
     Active Substance: LAMOTRIGINE
     Dosage: 600 MG, QD
  2. KEPPRA [Suspect]
     Active Substance: LEVETIRACETAM
     Dosage: 1000 MG, UNK

REACTIONS (13)
  - Fall [Unknown]
  - Overdose [Unknown]
  - Movement disorder [Unknown]
  - Drug ineffective [Unknown]
  - Memory impairment [Unknown]
  - Adverse event [Unknown]
  - Irritability [Unknown]
  - Petit mal epilepsy [Unknown]
  - Staring [Unknown]
  - Dyspnoea [Unknown]
  - Myoclonus [Unknown]
  - Somnolence [Unknown]
  - Condition aggravated [Unknown]
